FAERS Safety Report 5287898-2 (Version None)
Quarter: 2007Q2

REPORT INFORMATION
  Report Type: 
  Country: None (occurrence: None)
  Receive Date: 20070405
  Receipt Date: 20070326
  Transmission Date: 20071010
  Serious: Yes (Death, Hospitalization)
  Sender: FDA-Public Use
  Company Number: FR-JNJFOC-20070305935

PATIENT
  Age: 83 Year
  Sex: Female

DRUGS (6)
  1. DURAGESIC-100 [Suspect]
     Indication: DRUG USE FOR UNKNOWN INDICATION
     Route: 062
  2. PREVISCAN [Interacting]
     Indication: PHLEBITIS
     Route: 048
  3. PLAVIX [Interacting]
     Indication: DRUG USE FOR UNKNOWN INDICATION
     Route: 048
  4. VASTAREL [Concomitant]
     Route: 065
  5. DIAMICRON [Concomitant]
     Route: 065
  6. EUPRESSYL [Concomitant]
     Route: 065

REACTIONS (4)
  - CONDITION AGGRAVATED [None]
  - DRUG INTERACTION [None]
  - INTRACRANIAL PRESSURE INCREASED [None]
  - SUBDURAL HAEMATOMA [None]
